FAERS Safety Report 8599009-6 (Version None)
Quarter: 2012Q3

REPORT INFORMATION
  Report Type: 
  Country: None (occurrence: None)
  Receive Date: 20120816
  Receipt Date: 20120809
  Transmission Date: 20120928
  Serious: Yes (Hospitalization)
  Sender: FDA-Public Use
  Company Number: PHHY2012US068949

PATIENT
  Age: 51 Year
  Sex: Male

DRUGS (1)
  1. METHIMAZOLE [Suspect]
     Indication: BASEDOW'S DISEASE

REACTIONS (5)
  - ABASIA [None]
  - JOINT EFFUSION [None]
  - POLYARTHRITIS [None]
  - PYREXIA [None]
  - ARTHRALGIA [None]
